FAERS Safety Report 6021335-5 (Version None)
Quarter: 2008Q4

REPORT INFORMATION
  Report Type: 
  Country: None (occurrence: None)
  Receive Date: 20081229
  Receipt Date: 20081222
  Transmission Date: 20090506
  Serious: Yes (Disabling, Other)
  Sender: FDA-Public Use
  Company Number: A0758511A

PATIENT
  Age: 43 Year
  Sex: Male
  Weight: 102 kg

DRUGS (4)
  1. ADVAIR DISKUS 250/50 [Suspect]
     Indication: ASTHMA
     Route: 065
     Dates: start: 20001214
  2. CORTICOSTEROIDS FOR INHALATION [Suspect]
     Indication: DRUG USE FOR UNKNOWN INDICATION
     Route: 065
  3. VENTOLIN [Concomitant]
     Indication: ASTHMA
     Route: 065
  4. CIALIS [Concomitant]
     Indication: ERECTILE DYSFUNCTION
     Route: 065
     Dates: start: 20071213

REACTIONS (3)
  - BLINDNESS [None]
  - CATARACT SUBCAPSULAR [None]
  - VISION BLURRED [None]
